FAERS Safety Report 18817886 (Version 7)
Quarter: 2024Q1

REPORT INFORMATION
  Report Type: Spontaneous
  Country: US (occurrence: US)
  Receive Date: 20210201
  Receipt Date: 20240202
  Transmission Date: 20240410
  Serious: Yes (Hospitalization, Other)
  Sender: FDA-Public Use
  Company Number: US-PFIZER INC-2021000587

PATIENT
  Age: 80 Year
  Sex: Female
  Weight: 56.7 kg

DRUGS (1)
  1. IBRANCE [Suspect]
     Active Substance: PALBOCICLIB
     Indication: Breast cancer metastatic
     Dosage: DAILY FOR 3 WEEKS AND OFF FOR 1 WEEK
     Route: 048

REACTIONS (5)
  - Fall [Unknown]
  - Upper limb fracture [Unknown]
  - Wrist fracture [Unknown]
  - Hypoacusis [Unknown]
  - Fatigue [Unknown]

NARRATIVE: CASE EVENT DATE: 20230116
